FAERS Safety Report 23980477 (Version 8)
Quarter: 2025Q2

REPORT INFORMATION
  Report Type: Spontaneous
  Country: CA (occurrence: CA)
  Receive Date: 20240617
  Receipt Date: 20250604
  Transmission Date: 20250717
  Serious: Yes (Other)
  Sender: CELLTRION
  Company Number: CA-PFIZER INC-PV202400075742

PATIENT

DRUGS (11)
  1. INFLECTRA [Suspect]
     Active Substance: INFLIXIMAB-DYYB
     Indication: Colitis ulcerative
     Route: 042
     Dates: start: 20220520
  2. INFLECTRA [Suspect]
     Active Substance: INFLIXIMAB-DYYB
     Indication: Rheumatoid arthritis
     Dates: start: 20240610
  3. INFLECTRA [Suspect]
     Active Substance: INFLIXIMAB-DYYB
  4. INFLECTRA [Suspect]
     Active Substance: INFLIXIMAB-DYYB
  5. INFLECTRA [Suspect]
     Active Substance: INFLIXIMAB-DYYB
  6. INFLECTRA [Suspect]
     Active Substance: INFLIXIMAB-DYYB
  7. INFLECTRA [Suspect]
     Active Substance: INFLIXIMAB-DYYB
     Dates: start: 20241130
  8. INFLECTRA [Suspect]
     Active Substance: INFLIXIMAB-DYYB
     Dates: start: 20250109
  9. INFLECTRA [Suspect]
     Active Substance: INFLIXIMAB-DYYB
  10. INFLECTRA [Suspect]
     Active Substance: INFLIXIMAB-DYYB
     Route: 042
     Dates: start: 20250423
  11. INFLECTRA [Suspect]
     Active Substance: INFLIXIMAB-DYYB
     Route: 042

REACTIONS (8)
  - Foot fracture [Not Recovered/Not Resolved]
  - Pain in extremity [Not Recovered/Not Resolved]
  - Joint stiffness [Not Recovered/Not Resolved]
  - Condition aggravated [Not Recovered/Not Resolved]
  - Oral herpes [Recovering/Resolving]
  - Inflammation [Not Recovered/Not Resolved]
  - Mobility decreased [Not Recovered/Not Resolved]
  - Arthralgia [Recovering/Resolving]

NARRATIVE: CASE EVENT DATE: 20240603
